FAERS Safety Report 14890029 (Version 1)
Quarter: 2018Q2

REPORT INFORMATION
  Report Type: Spontaneous
  Country: US (occurrence: US)
  Receive Date: 20180514
  Receipt Date: 20180514
  Transmission Date: 20180711
  Serious: Yes (Other)
  Sender: FDA-Public Use
  Company Number: US-TEVA-2018-US-891408

PATIENT
  Sex: Female

DRUGS (1)
  1. SUCRALFATE. [Suspect]
     Active Substance: SUCRALFATE

REACTIONS (2)
  - Product physical issue [Unknown]
  - Choking [Unknown]
